FAERS Safety Report 12582421 (Version 1)
Quarter: 2016Q3

REPORT INFORMATION
  Report Type: Spontaneous
  Country: US (occurrence: None)
  Receive Date: 20160721
  Receipt Date: 20160721
  Transmission Date: 20161109
  Serious: Yes (Life-Threatening)
  Sender: FDA-Public Use
  Company Number: None

PATIENT
  Age: 86 Year
  Sex: Male
  Weight: 83.92 kg

DRUGS (3)
  1. ATENOLOL. [Concomitant]
     Active Substance: ATENOLOL
  2. COD LIVER OIL [Concomitant]
     Active Substance: COD LIVER OIL
  3. REGADENSON [Suspect]
     Active Substance: REGADENOSON
     Dosage: 4 UNITS

REACTIONS (6)
  - Speech disorder [None]
  - Feeling cold [None]
  - Movement disorder [None]
  - Feeling abnormal [None]
  - Pain [None]
  - Dyspnoea [None]

NARRATIVE: CASE EVENT DATE: 20150522
